FAERS Safety Report 5376170-8 (Version None)
Quarter: 2007Q3

REPORT INFORMATION
  Report Type: 
  Country: None (occurrence: None)
  Receive Date: 20070702
  Receipt Date: 20070621
  Transmission Date: 20080115
  Serious: Yes (Life-Threatening)
  Sender: FDA-Public Use
  Company Number: FR-GENENTECH-243237

PATIENT
  Age: 58 Year
  Sex: Male

DRUGS (8)
  1. MABTHERA [Suspect]
     Indication: B-CELL LYMPHOMA
     Dosage: 375 MG/M2, UNK
     Route: 042
     Dates: start: 20050530, end: 20051121
  2. MABTHERA [Suspect]
     Dosage: 700 MG, Q3M
     Dates: start: 20051121, end: 20070502
  3. DOXORUBICIN HCL [Suspect]
     Indication: B-CELL LYMPHOMA
     Dosage: 50 MG/M2, UNK
     Route: 042
     Dates: start: 20050415, end: 20050621
  4. PREDNISOLONE [Suspect]
     Indication: B-CELL LYMPHOMA
     Dosage: 40 MG/M2, UNK
     Route: 048
     Dates: start: 20050415, end: 20050819
  5. ONCOVIN [Suspect]
     Indication: B-CELL LYMPHOMA
     Dosage: 1.4 MG/M2, UNK
     Dates: start: 20050415, end: 20050815
  6. CYCLOPHOSPHAMIDE [Suspect]
     Indication: B-CELL LYMPHOMA
     Dosage: UNK, UNK
     Dates: start: 20050415, end: 20050713
  7. CYCLOPHOSPHAMIDE [Suspect]
     Dosage: 400 MG/M2, UNK
     Dates: start: 20050718, end: 20050801
  8. CYCLOPHOSPHAMIDE [Suspect]
     Indication: B-CELL LYMPHOMA
     Dosage: 750 MG/M2, UNK

REACTIONS (2)
  - PROSTATE CANCER [None]
  - PROSTATIC SPECIFIC ANTIGEN INCREASED [None]
